FAERS Safety Report 24892128 (Version 2)
Quarter: 2025Q1

REPORT INFORMATION
  Report Type: Spontaneous
  Country: JP (occurrence: JP)
  Receive Date: 20250128
  Receipt Date: 20250212
  Transmission Date: 20250408
  Serious: Yes (Other)
  Sender: AMGEN
  Company Number: JP-DSJP-DS-2025-120740-

PATIENT

DRUGS (1)
  1. DENOSUMAB [Suspect]
     Active Substance: DENOSUMAB
     Indication: Osteoporosis
     Dosage: UNK, ONCE EVERY 6 MO
     Route: 058
     Dates: end: 202312

REACTIONS (1)
  - Upper limb fracture [Unknown]

NARRATIVE: CASE EVENT DATE: 20240603
